FAERS Safety Report 4383210-1 (Version None)
Quarter: 2004Q2

REPORT INFORMATION
  Report Type: 
  Country: None (occurrence: None)
  Receive Date: 20040618
  Receipt Date: 20040601
  Transmission Date: 20050107
  Serious: Yes (Other)
  Sender: FDA-Public Use
  Company Number: USA040668899

PATIENT
  Age: 80 Year
  Sex: Female
  Weight: 91 kg

DRUGS (2)
  1. HUMULIN R [Suspect]
     Indication: DIABETES MELLITUS NON-INSULIN-DEPENDENT
     Dosage: 17 U/1 IN THE MORNING
     Dates: start: 19930101
  2. HUMULIN N [Suspect]
     Indication: DIABETES MELLITUS NON-INSULIN-DEPENDENT
     Dosage: 23 U DAY
     Dates: start: 19930101

REACTIONS (3)
  - GALLBLADDER OPERATION [None]
  - PANCREATIC INSUFFICIENCY [None]
  - POST PROCEDURAL COMPLICATION [None]
